FAERS Safety Report 14606894 (Version 1)
Quarter: 2018Q1

REPORT INFORMATION
  Report Type: Spontaneous
  Country: FR (occurrence: FR)
  Receive Date: 20180307
  Receipt Date: 20180307
  Transmission Date: 20180509
  Serious: Yes (Life-Threatening)
  Sender: FDA-Public Use
  Company Number: FR-ROCHE-2081140

PATIENT
  Age: 39 Year
  Sex: Male

DRUGS (4)
  1. VALIUM [Suspect]
     Active Substance: DIAZEPAM
     Indication: PRODUCT USED FOR UNKNOWN INDICATION
     Dosage: CF COMMENTAIRE
     Route: 048
  2. BACLOFENE [Suspect]
     Active Substance: BACLOFEN
     Indication: ALCOHOLISM
     Dosage: INCONNUE
     Route: 048
  3. EFFEXOR [Suspect]
     Active Substance: VENLAFAXINE HYDROCHLORIDE
     Indication: PRODUCT USED FOR UNKNOWN INDICATION
     Route: 048
  4. THERALENE (FRANCE) [Suspect]
     Active Substance: TRIMEPRAZINE
     Indication: PRODUCT USED FOR UNKNOWN INDICATION
     Dosage: CF COMMENTAIRE
     Route: 048

REACTIONS (1)
  - Coma [Recovered/Resolved]

NARRATIVE: CASE EVENT DATE: 20180113
